FAERS Safety Report 19029083 (Version 6)
Quarter: 2024Q3

REPORT INFORMATION
  Report Type: Spontaneous
  Country: IN (occurrence: IN)
  Receive Date: 20210318
  Receipt Date: 20240701
  Transmission Date: 20241017
  Serious: Yes (Other)
  Sender: PFIZER
  Company Number: IN-PFIZER INC-2019218965

PATIENT
  Age: 56 Year
  Sex: Female

DRUGS (9)
  1. CRIZOTINIB [Suspect]
     Active Substance: CRIZOTINIB
     Indication: Non-small cell lung cancer metastatic
     Dosage: 250 MG
     Route: 048
     Dates: start: 20180428
  2. CRIZOTINIB [Suspect]
     Active Substance: CRIZOTINIB
     Dosage: 250 MG, 2X/DAY FOR 5 DAY/WEEK
     Route: 048
     Dates: start: 20180508, end: 201911
  3. CRIZOTINIB [Suspect]
     Active Substance: CRIZOTINIB
     Dosage: UNK
     Dates: end: 20220417
  4. CRIZOTINIB [Suspect]
     Active Substance: CRIZOTINIB
     Dosage: 250 MG, 2X/DAY
     Route: 048
     Dates: end: 202406
  5. CRIZOTINIB [Suspect]
     Active Substance: CRIZOTINIB
     Dosage: 250 MG
     Route: 048
     Dates: end: 20240610
  6. CERITINIB [Suspect]
     Active Substance: CERITINIB
     Indication: Non-small cell lung cancer metastatic
     Dosage: UNK
     Dates: start: 201805
  7. CERITINIB [Suspect]
     Active Substance: CERITINIB
     Dosage: UNK
     Dates: start: 20191126, end: 20200219
  8. CERITINIB [Suspect]
     Active Substance: CERITINIB
     Dosage: AT REDUCED DOSE
     Dates: start: 20200321
  9. CERITINIB [Suspect]
     Active Substance: CERITINIB
     Dosage: 300 MG

REACTIONS (4)
  - Pericardial effusion [Recovered/Resolved]
  - Interstitial lung disease [Recovered/Resolved]
  - Fluid retention [Recovered/Resolved]
  - Neoplasm progression [Unknown]

NARRATIVE: CASE EVENT DATE: 20191101
